FAERS Safety Report 19304363 (Version 1)
Quarter: 2021Q2

REPORT INFORMATION
  Report Type: Spontaneous
  Country: PL (occurrence: PL)
  Receive Date: 20210526
  Receipt Date: 20210526
  Transmission Date: 20210717
  Serious: Yes (Other)
  Sender: FDA-Public Use
  Company Number: PL-CELLTRION INC.-2020PL035080

PATIENT

DRUGS (1)
  1. INFLIXIMAB (UNKNOWN) [Suspect]
     Active Substance: INFLIXIMAB
     Indication: COLITIS ULCERATIVE
     Dosage: UNK

REACTIONS (10)
  - Cell-mediated immune deficiency [Unknown]
  - Herpes oesophagitis [Recovered/Resolved]
  - Chest pain [Unknown]
  - Infection [Unknown]
  - Oral herpes [Recovered/Resolved]
  - Pharyngitis [Unknown]
  - Herpes simplex [Recovering/Resolving]
  - Herpes pharyngitis [Recovered/Resolved]
  - Contraindicated product administered [Unknown]
  - Oesophagitis [Recovered/Resolved]
